FAERS Safety Report 4965179-1 (Version None)
Quarter: 2006Q1

REPORT INFORMATION
  Report Type: 
  Country: None (occurrence: None)
  Receive Date: 20060207
  Receipt Date: 20050504
  Transmission Date: 20060701
  Serious: No
  Sender: FDA-Public Use
  Company Number: 243143

PATIENT
  Age: 2 Year
  Sex: Male
  Weight: 12.7 kg

DRUGS (1)
  1. NOVOLOG [Suspect]
     Indication: DIABETES MELLITUS INSULIN-DEPENDENT
     Dosage: 2 IU, TID, SUBCUTANEOUS
     Route: 058
     Dates: start: 20031010

REACTIONS (1)
  - BLOOD GLUCOSE DECREASED [None]
